FAERS Safety Report 8839458 (Version 1)
Quarter: 2012Q4

REPORT INFORMATION
  Report Type: Spontaneous
  Country: US (occurrence: None)
  Receive Date: 20121012
  Receipt Date: 20121012
  Transmission Date: 20130627
  Serious: Yes (Life-Threatening)
  Sender: FDA-Public Use
  Company Number: None

PATIENT
  Age: 43 Year
  Sex: Female
  Weight: 68.04 kg

DRUGS (2)
  1. ZOFRAN [Suspect]
     Indication: NAUSEA
     Dosage: 4mg every 4 hours sl
     Route: 060
     Dates: start: 20121005, end: 20121005
  2. ZOFRAN [Suspect]
     Indication: STOMACH FLU
     Dosage: 4mg every 4 hours sl
     Route: 060
     Dates: start: 20121005, end: 20121005

REACTIONS (7)
  - Dysstasia [None]
  - Visual impairment [None]
  - Loss of consciousness [None]
  - Pallor [None]
  - Headache [None]
  - Electrocardiogram QT prolonged [None]
  - Feeling abnormal [None]
